FAERS Safety Report 20206801 (Version 4)
Quarter: 2022Q1

REPORT INFORMATION
  Report Type: Spontaneous
  Country: FI (occurrence: FI)
  Receive Date: 20211220
  Receipt Date: 20220201
  Transmission Date: 20220423
  Serious: Yes (Life-Threatening, Hospitalization)
  Sender: FDA-Public Use
  Company Number: FI-CELGENE-FIN-20211204175

PATIENT
  Age: 80 Year
  Sex: Female
  Weight: 79.4 kg

DRUGS (15)
  1. AZACITIDINE [Suspect]
     Active Substance: AZACITIDINE
     Indication: Acute myeloid leukaemia
     Dosage: 75 MILLIGRAM/SQ. METER
     Route: 058
     Dates: start: 20180515, end: 20211209
  2. VENETOCLAX [Suspect]
     Active Substance: VENETOCLAX
     Indication: Acute myeloid leukaemia
     Route: 048
  3. ONDANSETRON [Concomitant]
     Active Substance: ONDANSETRON
     Indication: Nausea
     Dosage: 16 MILLIGRAM
     Route: 048
     Dates: start: 20180515
  4. METOPROLOL SUCCINATE [Concomitant]
     Active Substance: METOPROLOL SUCCINATE
     Indication: Hypertension
     Dosage: 95 MILLIGRAM
     Route: 048
     Dates: start: 20120710
  5. TRAMADOL HYDROCHLORIDE [Concomitant]
     Active Substance: TRAMADOL HYDROCHLORIDE
     Indication: Fracture pain
     Dosage: 100 MILLIGRAM
     Route: 048
     Dates: start: 20180416
  6. TRAMADOL HYDROCHLORIDE [Concomitant]
     Active Substance: TRAMADOL HYDROCHLORIDE
     Indication: Pain prophylaxis
     Dosage: 50 MILLIGRAM
     Route: 048
     Dates: start: 20180114, end: 20211213
  7. POLYETHYLENE GLYCOL 4000 [Concomitant]
     Active Substance: POLYETHYLENE GLYCOL 4000
     Indication: Constipation
     Dosage: 12 GRAM
     Route: 048
     Dates: start: 20180115
  8. ZOPICLONE [Concomitant]
     Active Substance: ZOPICLONE
     Indication: Insomnia
     Dosage: 7.5 GRAM
     Route: 048
     Dates: start: 20170324
  9. ACYCLOSTAD [Concomitant]
     Indication: Herpes virus infection
     Dosage: 800 MILLIGRAM
     Route: 048
     Dates: start: 20180615
  10. Amlodipin maleate [Concomitant]
     Indication: Hypertension
     Dosage: 10 MILLIGRAM
     Route: 048
     Dates: start: 20180524
  11. CALCIUM CARBONATE\CHOLECALCIFEROL [Concomitant]
     Active Substance: CALCIUM CARBONATE\CHOLECALCIFEROL
     Indication: Osteoporosis
     Dosage: 500/20 MG/UG
     Route: 048
     Dates: start: 20180720
  12. PAMOL F [Concomitant]
     Indication: Pyrexia
     Dosage: 500 MILLIGRAM
     Route: 048
     Dates: start: 20180713
  13. VOLTAREN [Concomitant]
     Active Substance: DICLOFENAC SODIUM
     Indication: Arthralgia
     Dosage: 2-4 (MG/G)
     Route: 048
     Dates: start: 20190603
  14. SUCRALFATE [Concomitant]
     Active Substance: SUCRALFATE
     Indication: Dyspepsia
     Dosage: 1 GRAM
     Route: 048
     Dates: start: 20210105
  15. PANTOPRAZOLE SODIUM [Concomitant]
     Active Substance: PANTOPRAZOLE SODIUM
     Indication: Dyspepsia
     Dosage: 40 GRAM
     Route: 048
     Dates: start: 20210105

REACTIONS (1)
  - Myocardial infarction [Recovered/Resolved]

NARRATIVE: CASE EVENT DATE: 20211210
